FAERS Safety Report 6807806-X (Version None)
Quarter: 2010Q2

REPORT INFORMATION
  Report Type: 
  Country: None (occurrence: None)
  Receive Date: 20100629
  Receipt Date: 20090105
  Transmission Date: 20101027
  Serious: No
  Sender: FDA-Public Use
  Company Number: US-PFIZER INC-2009151447

PATIENT
  Sex: Female

DRUGS (2)
  1. MEDROL [Suspect]
  2. SYNTHROID [Suspect]

REACTIONS (3)
  - BLOOD GLUCOSE INCREASED [None]
  - DIZZINESS [None]
  - HYPERTENSION [None]
